FAERS Safety Report 6574450-1 (Version None)
Quarter: 2010Q1

REPORT INFORMATION
  Report Type: 
  Country: None (occurrence: None)
  Receive Date: 20100209
  Receipt Date: 20090622
  Transmission Date: 20100710
  Serious: No
  Sender: FDA-Public Use
  Company Number: A0794361A

PATIENT

DRUGS (1)
  1. PAXIL [Suspect]
     Indication: ANXIETY
     Route: 065

REACTIONS (1)
  - DRUG EFFECT DECREASED [None]
